FAERS Safety Report 5928889-5 (Version None)
Quarter: 2008Q4

REPORT INFORMATION
  Report Type: 
  Country: None (occurrence: None)
  Receive Date: 20081024
  Receipt Date: 20081015
  Transmission Date: 20090506
  Serious: Yes (Other)
  Sender: FDA-Public Use
  Company Number: GB-ALLERGAN-0812166US

PATIENT
  Sex: Female
  Weight: 57.143 kg

DRUGS (4)
  1. LACRI-LUBE [Suspect]
     Indication: DRY EYE
     Dosage: UNK, QID
     Route: 047
     Dates: start: 19971001
  2. LACRI-LUBE [Suspect]
     Dosage: UNK, QHS
     Route: 047
     Dates: start: 20080101
  3. VISCOTEARS [Concomitant]
     Indication: DRY EYE
     Dosage: UNK, QID
     Dates: start: 20080101
  4. TEARS NATURALE [Concomitant]
     Indication: DRY EYE
     Dosage: UNK, QAM + PRN
     Dates: start: 19970101, end: 20080101

REACTIONS (4)
  - NEUROMYELITIS OPTICA [None]
  - OPTIC NEURITIS [None]
  - OPTIC NEUROPATHY [None]
  - TEMPORAL ARTERITIS [None]
